FAERS Safety Report 17798176 (Version 2)
Quarter: 2020Q2

REPORT INFORMATION
  Report Type: Spontaneous
  Country: US (occurrence: US)
  Receive Date: 20200518
  Receipt Date: 20200521
  Transmission Date: 20200714
  Serious: No
  Sender: FDA-Public Use
  Company Number: US-ASTRAZENECA-2020SE56817

PATIENT
  Age: 716 Month
  Sex: Female

DRUGS (1)
  1. BYDUREON [Suspect]
     Active Substance: EXENATIDE
     Indication: TYPE 2 DIABETES MELLITUS
     Route: 058
     Dates: start: 202004

REACTIONS (3)
  - Injection site pruritus [Recovered/Resolved]
  - Memory impairment [Unknown]
  - Device leakage [Unknown]

NARRATIVE: CASE EVENT DATE: 202004
